FAERS Safety Report 8165700-9 (Version None)
Quarter: 2012Q1

REPORT INFORMATION
  Report Type: 
  Country: None (occurrence: None)
  Receive Date: 20120223
  Receipt Date: 20120223
  Transmission Date: 20120608
  Serious: Yes (Congenital Anomaly)
  Sender: FDA-Public Use
  Company Number: None

PATIENT
  Age: 31 Year
  Sex: Female
  Weight: 63.5036 kg

DRUGS (2)
  1. IMIPRAMINE HYDROCHLORIDE [Suspect]
     Indication: DEPRESSION
     Dosage: 1 DAILY DAILY
     Dates: start: 19930101, end: 19950101
  2. IMIPRAMINE HYDROCHLORIDE [Suspect]
     Indication: PANIC ATTACK
     Dosage: 1 DAILY DAILY
     Dates: start: 19930101, end: 19950101

REACTIONS (4)
  - TALIPES [None]
  - MATERNAL DRUGS AFFECTING FOETUS [None]
  - HYDROCEPHALUS [None]
  - SPINA BIFIDA [None]
